FAERS Safety Report 7551515-9 (Version None)
Quarter: 2011Q2

REPORT INFORMATION
  Report Type: 
  Country: None (occurrence: None)
  Receive Date: 20110616
  Receipt Date: 20110607
  Transmission Date: 20111010
  Serious: Yes (Hospitalization, Other)
  Sender: FDA-Public Use
  Company Number: US-AMGEN-USASP2011029516

PATIENT
  Age: 56 Year
  Sex: Female

DRUGS (1)
  1. ENBREL [Suspect]
     Indication: PSORIASIS
     Dosage: 50 MG, 2 TIMES/WK
     Dates: start: 20080101

REACTIONS (6)
  - STRESS [None]
  - MYOCARDIAL INFARCTION [None]
  - CHEST PAIN [None]
  - ALOPECIA [None]
  - ROAD TRAFFIC ACCIDENT [None]
  - PSORIASIS [None]
